FAERS Safety Report 22351863 (Version 2)
Quarter: 2023Q2

REPORT INFORMATION
  Report Type: Report from Study
  Country: CN (occurrence: CN)
  Receive Date: 20230522
  Receipt Date: 20230620
  Transmission Date: 20230722
  Serious: Yes (Hospitalization)
  Sender: FDA-Public Use
  Company Number: CN-GSK-CN2023068024

PATIENT

DRUGS (1)
  1. BELANTAMAB MAFODOTIN [Suspect]
     Active Substance: BELANTAMAB MAFODOTIN
     Indication: Plasma cell myeloma
     Dosage: 152.80 MG, CYC
     Route: 042
     Dates: start: 20211210, end: 20230223

REACTIONS (2)
  - Sinus tachycardia [Recovered/Resolved with Sequelae]
  - Pneumonia [Recovering/Resolving]

NARRATIVE: CASE EVENT DATE: 20230506
